FAERS Safety Report 15350429 (Version 2)
Quarter: 2018Q3

REPORT INFORMATION
  Report Type: Report from Study
  Country: None (occurrence: TW)
  Receive Date: 20180905
  Receipt Date: 20180924
  Transmission Date: 20181010
  Serious: Yes (Hospitalization)
  Sender: FDA-Public Use
  Company Number: TW-ABBVIE-18K-153-2471841-00

PATIENT
  Age: 49 Year
  Sex: Female
  Weight: 41.2 kg

DRUGS (1)
  1. HUMIRA [Suspect]
     Active Substance: ADALIMUMAB
     Indication: CROHN^S DISEASE
     Route: 058
     Dates: start: 20180707, end: 20180818

REACTIONS (5)
  - Duodenal stenosis [Recovering/Resolving]
  - Platelet count increased [Unknown]
  - Haemoglobin decreased [Recovering/Resolving]
  - White blood cell count increased [Unknown]
  - Blood albumin decreased [Unknown]

NARRATIVE: CASE EVENT DATE: 20180827
